FAERS Safety Report 23548969 (Version 6)
Quarter: 2024Q2

REPORT INFORMATION
  Report Type: Other
  Country: US (occurrence: US)
  Receive Date: 20240221
  Receipt Date: 20240502
  Transmission Date: 20240716
  Serious: Yes (Other)
  Sender: FDA-Public Use
  Company Number: US-TRAVERE-2024TVT00168

PATIENT
  Age: 39 Year
  Sex: Female

DRUGS (3)
  1. FILSPARI [Suspect]
     Active Substance: SPARSENTAN
     Indication: IgA nephropathy
     Route: 048
     Dates: start: 20240202
  2. FILSPARI [Suspect]
     Active Substance: SPARSENTAN
     Route: 048
     Dates: start: 20240227
  3. FILSPARI [Suspect]
     Active Substance: SPARSENTAN
     Dosage: 400MG TABLET HAS BEEN CUTTING IN HALF
     Route: 048
     Dates: start: 20240327, end: 2024

REACTIONS (8)
  - Loss of consciousness [Unknown]
  - Hyperkalaemia [Unknown]
  - Dizziness [Unknown]
  - Hypotension [Unknown]
  - Inappropriate schedule of product administration [Unknown]
  - Hyperhidrosis [Unknown]
  - Skin odour abnormal [Unknown]
  - Wrong technique in product usage process [Unknown]

NARRATIVE: CASE EVENT DATE: 20240219
